FAERS Safety Report 19699414 (Version 1)
Quarter: 2021Q3

REPORT INFORMATION
  Report Type: Spontaneous
  Country: FR (occurrence: FR)
  Receive Date: 20210813
  Receipt Date: 20210813
  Transmission Date: 20211014
  Serious: Yes (Death)
  Sender: FDA-Public Use
  Company Number: FR-TEVA-2021-FR-1940618

PATIENT
  Age: 43 Year
  Sex: Male

DRUGS (3)
  1. BISOPROLOL (FUMARATE ACIDE DE) [Suspect]
     Active Substance: BISOPROLOL FUMARATE
     Dosage: UNKNOWN
     Route: 065
     Dates: end: 202001
  2. PARACETAMOL [Suspect]
     Active Substance: ACETAMINOPHEN
     Dosage: UNKNOWN
     Route: 065
     Dates: end: 202001
  3. ACETATE DE FLECAINIDE [Suspect]
     Active Substance: FLECAINIDE ACETATE
     Dosage: UNKNOWN
     Route: 065
     Dates: end: 202001

REACTIONS (2)
  - Cardio-respiratory arrest [Fatal]
  - Poisoning deliberate [Fatal]
